FAERS Safety Report 4308723-X (Version None)
Quarter: 2004Q1

REPORT INFORMATION
  Report Type: 
  Country: None (occurrence: None)
  Receive Date: 20040227
  Receipt Date: 20040223
  Transmission Date: 20041129
  Serious: Yes (Other)
  Sender: FDA-Public Use
  Company Number: 2004200446US

PATIENT
  Age: 60 Year
  Sex: Female

DRUGS (2)
  1. CELEBREX [Suspect]
     Indication: FIBROMYALGIA
  2. LITHIUM CARBONATE [Suspect]

REACTIONS (3)
  - DRUG INEFFECTIVE [None]
  - THERAPEUTIC AGENT TOXICITY [None]
  - THROMBOSIS [None]
